FAERS Safety Report 25981966 (Version 1)
Quarter: 2025Q4

REPORT INFORMATION
  Report Type: Spontaneous
  Country: EU (occurrence: EU)
  Receive Date: 20251031
  Receipt Date: 20251031
  Transmission Date: 20260119
  Serious: Yes (Hospitalization, Other)
  Sender: HETERO
  Company Number: None

PATIENT
  Age: 84 Year
  Sex: Male

DRUGS (3)
  1. POSACONAZOLE [Interacting]
     Active Substance: POSACONAZOLE
     Indication: Prophylaxis
     Dosage: 100 MILLIGRAM, Q.D.(UP TO DATE WITH LIFE INTAKE)
     Route: 048
     Dates: start: 20250714, end: 20250826
  2. VENETOCLAX [Interacting]
     Active Substance: VENETOCLAX
     Indication: Acute myeloid leukaemia
     Dosage: 100 MILLIGRAM, Q.D.(1 A DAY)
     Route: 048
     Dates: start: 20250210, end: 20250826
  3. VIDAZA [Concomitant]
     Active Substance: AZACITIDINE
     Indication: Acute myeloid leukaemia
     Dosage: 118 MILLIGRAM, Q.D.(118MG PER DAY FOR 7 DAYS)
     Route: 058
     Dates: start: 20250210, end: 20250826

REACTIONS (3)
  - Hyponatraemia [Recovered/Resolved]
  - Staphylococcal bacteraemia [Recovering/Resolving]
  - Drug interaction [Unknown]

NARRATIVE: CASE EVENT DATE: 20250826
